FAERS Safety Report 9429149 (Version 2)
Quarter: 2013Q3

REPORT INFORMATION
  Report Type: Spontaneous
  Country: RS (occurrence: RS)
  Receive Date: 20130730
  Receipt Date: 20130807
  Transmission Date: 20140515
  Serious: Yes (Other)
  Sender: FDA-Public Use
  Company Number: RS-PFIZER INC-2013156746

PATIENT
  Age: 58 Year
  Sex: Female

DRUGS (3)
  1. NORVASC [Suspect]
     Indication: HYPERTENSION
     Dosage: 5 MG, 1X/DAY
     Route: 048
     Dates: start: 201302, end: 201303
  2. PLENDIL [Suspect]
     Indication: HYPERTENSION
     Dosage: 5 MG, 1X/DAY
     Route: 048
     Dates: start: 201303, end: 201304
  3. METOPROLOL [Concomitant]
     Indication: ANGINA PECTORIS
     Dosage: 47.5 MG, UNK, 1/2 TABLET DAILY
     Route: 048
     Dates: start: 2012, end: 201303

REACTIONS (3)
  - Swelling face [Recovered/Resolved]
  - Hypopnoea [Recovered/Resolved]
  - Nasal congestion [Recovered/Resolved]
